FAERS Safety Report 4714281-8 (Version None)
Quarter: 2005Q3

REPORT INFORMATION
  Report Type: 
  Country: None (occurrence: None)
  Receive Date: 20050714
  Receipt Date: 20050701
  Transmission Date: 20060218
  Serious: Yes (Other)
  Sender: FDA-Public Use
  Company Number: FR-JNJFOC-20050700423

PATIENT
  Age: 82 Year
  Sex: Male

DRUGS (5)
  1. REMINYL [Suspect]
     Route: 049
  2. EBIXA [Concomitant]
     Route: 065
  3. JOSIR [Concomitant]
     Route: 065
  4. ALDACTAZINE [Concomitant]
     Route: 065
  5. ALDACTAZINE [Concomitant]
     Route: 065

REACTIONS (2)
  - OEDEMA [None]
  - RENAL FAILURE [None]
